FAERS Safety Report 18360313 (Version 1)
Quarter: 2020Q4

REPORT INFORMATION
  Report Type: Report from Study
  Country: US (occurrence: US)
  Receive Date: 20201008
  Receipt Date: 20201008
  Transmission Date: 20210114
  Serious: Yes (Hospitalization)
  Sender: FDA-Public Use
  Company Number: US-EISAI MEDICAL RESEARCH-EC-2020-080993

PATIENT
  Age: 82 Year
  Sex: Male

DRUGS (1)
  1. LENVIMA [Suspect]
     Active Substance: LENVATINIB
     Indication: HEPATOCELLULAR CARCINOMA
     Route: 048
     Dates: start: 20200919, end: 202009

REACTIONS (6)
  - Hepatic encephalopathy [Unknown]
  - Asthenia [Unknown]
  - Epistaxis [Unknown]
  - Dysphonia [Unknown]
  - Hypotension [Recovering/Resolving]
  - Ammonia increased [Unknown]

NARRATIVE: CASE EVENT DATE: 202009
